FAERS Safety Report 10094709 (Version 1)
Quarter: 2014Q2

REPORT INFORMATION
  Report Type: Spontaneous
  Country: US (occurrence: US)
  Receive Date: 20140422
  Receipt Date: 20140422
  Transmission Date: 20141212
  Serious: Yes (Hospitalization, Other)
  Sender: FDA-Public Use
  Company Number: US-ASTRAZENECA-2014SE26238

PATIENT
  Age: 56 Year
  Sex: Female
  Weight: 136.1 kg

DRUGS (22)
  1. NEXIUM [Suspect]
     Indication: GASTROOESOPHAGEAL REFLUX DISEASE
     Route: 048
  2. PRILOSEC [Suspect]
     Indication: GASTROOESOPHAGEAL REFLUX DISEASE
     Dosage: UNK
     Route: 048
  3. PRILOSEC OTC [Suspect]
     Dosage: UNK
     Route: 048
     Dates: start: 201310
  4. ZAROXOLYN [Suspect]
     Dosage: UNK
     Route: 065
  5. BENTYL [Concomitant]
     Indication: ABDOMINAL PAIN UPPER
     Dosage: 1 OR 2 O4 PRN
  6. SINEMET [Concomitant]
     Indication: RESTLESS LEGS SYNDROME
     Dosage: 25/100 0R 25/250 OID
  7. KLONAPIN [Concomitant]
     Indication: PANIC ATTACK
     Dosage: 2 PILLS DAILY
  8. CYCLOPENZAPRIME [Concomitant]
     Indication: PAIN
  9. LASIX [Concomitant]
     Indication: LOCAL SWELLING
  10. OXYCONTIN [Concomitant]
     Indication: PAIN
  11. OXYCODONE [Concomitant]
     Indication: PAIN
  12. PROTONIX [Concomitant]
     Indication: GASTROOESOPHAGEAL REFLUX DISEASE
  13. PROZAC [Concomitant]
     Indication: ANXIETY
  14. POTASSIUM [Concomitant]
  15. PRAVACHOL [Concomitant]
     Indication: BLOOD CHOLESTEROL ABNORMAL
  16. COMPAZINE [Concomitant]
     Indication: ABDOMINAL DISCOMFORT
  17. REQUIP [Concomitant]
     Indication: RESTLESS LEGS SYNDROME
  18. SPIRINOLACTONE [Concomitant]
     Indication: DIURETIC THERAPY
  19. FLOMAX [Concomitant]
     Indication: MICTURITION DISORDER
  20. TOPIRAMATE [Concomitant]
     Indication: PHANTOM PAIN
     Dosage: 2 TABS 50MG BID
  21. OTC LAXATIVES [Concomitant]
  22. GARCINIA CAMBOGIA [Concomitant]

REACTIONS (18)
  - Fall [Unknown]
  - Ankle fracture [Unknown]
  - Wrist fracture [Unknown]
  - Hypokalaemia [Unknown]
  - Drug hypersensitivity [Unknown]
  - Rheumatoid arthritis [Unknown]
  - Osteoarthritis [Unknown]
  - Bone disorder [Unknown]
  - Gastrooesophageal reflux disease [Unknown]
  - Gastric polyps [Unknown]
  - Mobility decreased [Unknown]
  - Weight increased [Unknown]
  - Body height decreased [Unknown]
  - Contusion [Unknown]
  - Abdominal pain upper [Unknown]
  - Dizziness [Unknown]
  - Adverse event [Unknown]
  - Drug administration error [Unknown]
